FAERS Safety Report 12304040 (Version 1)
Quarter: 2016Q2

REPORT INFORMATION
  Report Type: Spontaneous
  Country: US (occurrence: None)
  Receive Date: 20160425
  Receipt Date: 20160425
  Transmission Date: 20160815
  Serious: Yes (Other)
  Sender: FDA-Public Use
  Company Number: None

PATIENT
  Sex: Female
  Weight: 48.08 kg

DRUGS (11)
  1. I [Concomitant]
  2. CALCIUM WITH D [Concomitant]
     Active Substance: CALCIUM\VITAMIN D
  3. MAGNESIUM [Concomitant]
     Active Substance: MAGNESIUM
  4. VITAMIN D3 [Concomitant]
     Active Substance: CHOLECALCIFEROL
  5. ESTRACE [Concomitant]
     Active Substance: ESTRADIOL
  6. MYRBETRIQ [Suspect]
     Active Substance: MIRABEGRON
     Indication: URINARY INCONTINENCE
     Route: 048
     Dates: start: 20150130, end: 20160206
  7. FISH OIL [Concomitant]
     Active Substance: FISH OIL
  8. METAMUCIL [Concomitant]
     Active Substance: PLANTAGO SEED
  9. VITAMIN B12 [Concomitant]
     Active Substance: CYANOCOBALAMIN
  10. OMPAZOLE [Concomitant]
  11. CENTRUM WOMEN 50+ [Concomitant]

REACTIONS (16)
  - Pyrexia [None]
  - Pruritus [None]
  - Activities of daily living impaired [None]
  - Somnolence [None]
  - Mental impairment [None]
  - Dysstasia [None]
  - Fatigue [None]
  - Nausea [None]
  - Nasopharyngitis [None]
  - Lethargy [None]
  - Rash [None]
  - Musculoskeletal pain [None]
  - Decreased appetite [None]
  - Disturbance in attention [None]
  - Headache [None]
  - Therapy cessation [None]
